FAERS Safety Report 5853261-6 (Version None)
Quarter: 2008Q3

REPORT INFORMATION
  Report Type: 
  Country: None (occurrence: None)
  Receive Date: 20080820
  Receipt Date: 20080814
  Transmission Date: 20090109
  Serious: Yes (Hospitalization)
  Sender: FDA-Public Use
  Company Number: ADE2008-0267

PATIENT
  Sex: Female

DRUGS (9)
  1. SERTRALINE [Suspect]
     Indication: DEPRESSION
     Dosage: 20-40MG/DAY;
     Dates: end: 20050601
  2. RISPERIDONE [Suspect]
     Indication: ANTIDEPRESSANT THERAPY
     Dosage: 2MG/DAY;
     Dates: end: 20050901
  3. TRAZODONE HCL [Suspect]
     Indication: DRUG USE FOR UNKNOWN INDICATION
     Dosage: 150MG, DAY;
     Dates: start: 20021101
  4. VENLAFAXINE HCL [Suspect]
     Indication: DRUG USE FOR UNKNOWN INDICATION
     Dosage: 75MG/DAY;
     Dates: start: 20021101
  5. SERTRALINE [Suspect]
     Indication: DRUG USE FOR UNKNOWN INDICATION
     Dosage: 50MG/DAY;
     Dates: start: 20020801, end: 20021101
  6. PAROXETINE HCL [Suspect]
     Indication: DRUG USE FOR UNKNOWN INDICATION
     Dosage: 20MG/DAY;
     Dates: start: 20011201, end: 20020801
  7. FLUOXETINE [Suspect]
     Indication: DRUG USE FOR UNKNOWN INDICATION
     Dosage: 20MG/DAY;
     Dates: start: 19980601, end: 20011201
  8. LORAZEPAM [Concomitant]
  9. ALPRAZOLAM [Concomitant]

REACTIONS (5)
  - BLOOD PROLACTIN INCREASED [None]
  - JOINT SWELLING [None]
  - OSTEOPOROSIS [None]
  - RESPIRATORY DISTRESS [None]
  - RIB FRACTURE [None]
